FAERS Safety Report 9225785 (Version 1)
Quarter: 2013Q2

REPORT INFORMATION
  Report Type: Spontaneous
  Country: US (occurrence: None)
  Receive Date: 20130410
  Receipt Date: 20130410
  Transmission Date: 20140414
  Serious: Yes (Hospitalization)
  Sender: FDA-Public Use
  Company Number: None

PATIENT
  Age: 52 Year
  Sex: Female
  Weight: 40.3 kg

DRUGS (2)
  1. HUMULIN [Suspect]
     Dosage: 10 UNITS QPM SQ
  2. HUMALOG KWIKPEN [Suspect]
     Dosage: SSI SQ TID

REACTIONS (5)
  - Unresponsive to stimuli [None]
  - Hypoglycaemia [None]
  - Hypophagia [None]
  - Blood glucose fluctuation [None]
  - Decreased appetite [None]
